FAERS Safety Report 4608619-X (Version None)
Quarter: 2005Q1

REPORT INFORMATION
  Report Type: 
  Country: None (occurrence: None)
  Receive Date: 20050311
  Receipt Date: 20050311
  Transmission Date: 20050727
  Serious: No
  Sender: FDA-Public Use
  Company Number: None

PATIENT
  Sex: Female
  Weight: 58.64 kg

DRUGS (1)
  1. GEMCITABINE [Suspect]
     Dosage: 1500 MG/M2 IV OVER 150 MIN. Q WK. X3 EVERY 4 WEEKS
     Route: 042
     Dates: start: 20050222

REACTIONS (6)
  - BLOOD PRESSURE DIASTOLIC DECREASED [None]
  - CHEST PAIN [None]
  - DYSPNOEA [None]
  - OXYGEN SATURATION DECREASED [None]
  - RESPIRATORY RATE INCREASED [None]
  - UPPER RESPIRATORY TRACT INFECTION [None]
